FAERS Safety Report 9274605 (Version 1)
Quarter: 2013Q2

REPORT INFORMATION
  Report Type: Spontaneous
  Country: US (occurrence: None)
  Receive Date: 20130430
  Receipt Date: 20130430
  Transmission Date: 20140414
  Serious: No
  Sender: FDA-Public Use
  Company Number: None

PATIENT
  Age: 11 Year
  Sex: Female

DRUGS (1)
  1. OMNITROPE [Suspect]
     Indication: DWARFISM
     Dosage: EVERY EVENING
     Route: 058
     Dates: start: 20130531

REACTIONS (2)
  - Syncope [None]
  - Headache [None]
